FAERS Safety Report 7865350-5 (Version None)
Quarter: 2011Q4

REPORT INFORMATION
  Report Type: 
  Country: None (occurrence: None)
  Receive Date: 20111028
  Receipt Date: 20101130
  Transmission Date: 20120403
  Serious: No
  Sender: FDA-Public Use
  Company Number: US-GLAXOSMITHKLINE-A0896980A

PATIENT
  Age: 83 Year
  Sex: Female

DRUGS (13)
  1. ADVAIR DISKUS 100/50 [Suspect]
     Indication: DYSPNOEA
     Dosage: 1PUFF TWICE PER DAY
     Route: 055
     Dates: start: 20101118
  2. TRIMETHOPRIM [Concomitant]
  3. ICAPS [Concomitant]
  4. VITAMIN B COMPLEX CAP [Concomitant]
  5. MULTI-VITAMIN [Concomitant]
  6. COQ10 [Concomitant]
  7. METOPROLOL TARTRATE [Concomitant]
  8. KLOR-CON [Concomitant]
  9. IRON [Concomitant]
  10. LUTEIN [Concomitant]
  11. PREDNISONE [Concomitant]
  12. ASPIRIN [Concomitant]
  13. CALCIUM CARBONATE [Concomitant]

REACTIONS (2)
  - HAEMOPTYSIS [None]
  - LUNG INFECTION [None]
